FAERS Safety Report 4854804-1 (Version None)
Quarter: 2005Q4

REPORT INFORMATION
  Report Type: 
  Country: None (occurrence: None)
  Receive Date: 20051215
  Receipt Date: 20051027
  Transmission Date: 20060501
  Serious: Yes (Other)
  Sender: FDA-Public Use
  Company Number: PHRM2005FR02915

PATIENT
  Age: 71 Year
  Sex: Female
  Weight: 84 kg

DRUGS (3)
  1. ZOMETA [Suspect]
     Indication: BREAST CANCER METASTATIC
     Dosage: UNK, UNK
     Route: 042
     Dates: start: 20040811, end: 20050701
  2. AROMASIN [Suspect]
     Indication: BREAST CANCER METASTATIC
     Dates: start: 20041227
  3. TAXOL [Concomitant]
     Indication: METASTASES TO BONE
     Dates: start: 20041004, end: 20051115

REACTIONS (5)
  - OSTEOLYSIS [None]
  - OSTEONECROSIS [None]
  - PAIN IN JAW [None]
  - SCINTIGRAPHY [None]
  - TOOTH EXTRACTION [None]
